FAERS Safety Report 6498561-4 (Version None)
Quarter: 2009Q4

REPORT INFORMATION
  Report Type: 
  Country: None (occurrence: None)
  Receive Date: 20091127
  Receipt Date: 20090611
  Transmission Date: 20100525
  Serious: Yes (Hospitalization)
  Sender: FDA-Public Use
  Company Number: 288259

PATIENT
  Age: 35 Year
  Sex: Male
  Weight: 45.4 kg

DRUGS (1)
  1. NOVOLOG MIX 70/30 [Suspect]
     Indication: TYPE 1 DIABETES MELLITUS
     Dosage: 25 UNITS AM, 30 UNITS PM, SUBCUTANEOUS
     Route: 058
     Dates: start: 20070101, end: 20090101

REACTIONS (1)
  - BLOOD GLUCOSE INCREASED [None]
